FAERS Safety Report 9775763 (Version 1)
Quarter: 2013Q4

REPORT INFORMATION
  Report Type: Spontaneous
  Country: JP (occurrence: JP)
  Receive Date: 20131220
  Receipt Date: 20131220
  Transmission Date: 20140711
  Serious: Yes (Other)
  Sender: FDA-Public Use
  Company Number: JP-BRISTOL-MYERS SQUIBB COMPANY-19930627

PATIENT
  Age: 33 Year
  Sex: Female

DRUGS (2)
  1. METGLUCO [Suspect]
     Route: 048
  2. SEIBULE [Suspect]
     Indication: DIABETES MELLITUS
     Route: 048
     Dates: start: 2010

REACTIONS (1)
  - Colitis [Unknown]
